FAERS Safety Report 21993341 (Version 1)
Quarter: 2023Q1

REPORT INFORMATION
  Report Type: Spontaneous
  Country: PL (occurrence: PL)
  Receive Date: 20230215
  Receipt Date: 20230215
  Transmission Date: 20230418
  Serious: Yes (Other)
  Sender: FDA-Public Use
  Company Number: PL-SUN PHARMACEUTICAL INDUSTRIES LTD-2023R1-378808

PATIENT
  Age: 13 Year
  Sex: Male

DRUGS (4)
  1. PREDNISONE [Suspect]
     Active Substance: PREDNISONE
     Indication: Non-Hodgkin^s lymphoma
     Dosage: 60 MILLIGRAM/SQ. METER, DAILY
     Route: 065
     Dates: start: 201407
  2. VINCRISTINE [Suspect]
     Active Substance: VINCRISTINE
     Indication: Non-Hodgkin^s lymphoma
     Dosage: 1.5 MILLIGRAM/SQ. METER, DAILY
     Route: 065
     Dates: start: 201407
  3. DAUNORUBICIN [Suspect]
     Active Substance: DAUNORUBICIN
     Indication: Non-Hodgkin^s lymphoma
     Dosage: 30 MILLIGRAM/SQ. METER, DAILY
     Route: 065
     Dates: start: 201407
  4. ASPARAGINASE [Concomitant]
     Active Substance: ASPARAGINASE
     Indication: Non-Hodgkin^s lymphoma
     Dosage: 10,000 IU/M2/DAY
     Route: 065
     Dates: start: 201407

REACTIONS (4)
  - Neurotoxicity [Unknown]
  - Febrile neutropenia [Unknown]
  - Anaemia [Unknown]
  - Stomatitis [Unknown]
